FAERS Safety Report 21973745 (Version 4)
Quarter: 2023Q1

REPORT INFORMATION
  Report Type: Report from Study
  Country: ES (occurrence: ES)
  Receive Date: 20230209
  Receipt Date: 20230306
  Transmission Date: 20230418
  Serious: Yes (Hospitalization)
  Sender: FDA-Public Use
  Company Number: ES-ABBVIE-4299906

PATIENT
  Age: 78 Year
  Sex: Female

DRUGS (2)
  1. CARBIDOPA\LEVODOPA [Suspect]
     Active Substance: CARBIDOPA\LEVODOPA
     Indication: Parkinson^s disease
     Route: 050
     Dates: start: 20221028, end: 20230223
  2. CARBIDOPA\LEVODOPA [Suspect]
     Active Substance: CARBIDOPA\LEVODOPA

REACTIONS (13)
  - Peritonitis [Unknown]
  - Stoma site reaction [Recovered/Resolved]
  - Stoma site erythema [Not Recovered/Not Resolved]
  - Pain [Unknown]
  - Stoma site discharge [Not Recovered/Not Resolved]
  - Stoma complication [Not Recovered/Not Resolved]
  - Device dislocation [Recovered/Resolved]
  - Stoma site infection [Recovered/Resolved]
  - Device dislocation [Unknown]
  - Wound [Recovered/Resolved]
  - Abdominal distension [Unknown]
  - Gait disturbance [Unknown]
  - Device issue [Unknown]

NARRATIVE: CASE EVENT DATE: 20221001
